FAERS Safety Report 13292998 (Version 3)
Quarter: 2017Q2

REPORT INFORMATION
  Report Type: Report from Study
  Country: JP (occurrence: JP)
  Receive Date: 20170303
  Receipt Date: 20170619
  Transmission Date: 20170830
  Serious: Yes (Death, Hospitalization, Other)
  Sender: FDA-Public Use
  Company Number: JP-BRISTOL-MYERS SQUIBB COMPANY-BMS-2017-017917

PATIENT
  Age: 78 Year
  Sex: Male
  Weight: 51 kg

DRUGS (5)
  1. IPILIMUMAB [Suspect]
     Active Substance: IPILIMUMAB
     Indication: MALIGNANT MELANOMA
     Dosage: 3 MG/KG, UNK
     Route: 065
     Dates: start: 20160715, end: 20160715
  2. NIVOLUMAB [Suspect]
     Active Substance: NIVOLUMAB
     Indication: MALIGNANT MELANOMA
     Dosage: UNK
     Route: 065
     Dates: start: 201605, end: 201607
  3. FAMOTIDINE. [Concomitant]
     Active Substance: FAMOTIDINE
     Indication: MALIGNANT MELANOMA
     Dosage: 20 MG, UNK
     Route: 065
     Dates: start: 20160715, end: 20160825
  4. SULPERAZON [Concomitant]
     Active Substance: CEFOPERAZONE SODIUM\SULBACTAM SODIUM
     Indication: ADVERSE EVENT
     Dosage: 4 G, UNK
     Route: 065
     Dates: start: 20160820, end: 20160820
  5. IPILIMUMAB [Suspect]
     Active Substance: IPILIMUMAB
     Indication: PRODUCT USED FOR UNKNOWN INDICATION
     Dosage: 3 MG/KG, UNK
     Route: 065
     Dates: start: 20160804, end: 20160804

REACTIONS (2)
  - Pneumonia aspiration [Not Recovered/Not Resolved]
  - Malignant neoplasm progression [Fatal]

NARRATIVE: CASE EVENT DATE: 20160715
